FAERS Safety Report 12599791 (Version 1)
Quarter: 2016Q3

REPORT INFORMATION
  Report Type: Spontaneous
  Country: US (occurrence: US)
  Receive Date: 20160727
  Receipt Date: 20160727
  Transmission Date: 20161109
  Serious: Yes (Other)
  Sender: FDA-Public Use
  Company Number: US-TEVA-675188USA

PATIENT
  Sex: Female

DRUGS (1)
  1. COPAXONE [Suspect]
     Active Substance: GLATIRAMER ACETATE
     Indication: MULTIPLE SCLEROSIS
     Dosage: UNKNOWN FORM STRENGTH
     Route: 065

REACTIONS (8)
  - Pain [Unknown]
  - Multiple sclerosis [Unknown]
  - Fatigue [Unknown]
  - Depression [Unknown]
  - Living in residential institution [Recovered/Resolved]
  - Multiple sclerosis relapse [Unknown]
  - Malaise [Recovering/Resolving]
  - Inflammation [Unknown]
